FAERS Safety Report 8176673-7 (Version None)
Quarter: 2012Q1

REPORT INFORMATION
  Report Type: 
  Country: None (occurrence: None)
  Receive Date: 20120228
  Receipt Date: 20120213
  Transmission Date: 20120608
  Serious: Yes (Hospitalization)
  Sender: FDA-Public Use
  Company Number: JPI-P-019858

PATIENT
  Age: 42 Year
  Sex: Female

DRUGS (3)
  1. XYREM [Suspect]
     Indication: CATAPLEXY
     Dosage: 4.5 GM (2.25 GM,2 IN 1 D),ORAL, ORAL,  9 GM (4.5 GM, 2 IN 1 D),ORAL
     Route: 048
     Dates: start: 20030101, end: 20030717
  2. XYREM [Suspect]
     Indication: CATAPLEXY
     Dosage: 4.5 GM (2.25 GM,2 IN 1 D),ORAL, ORAL,  9 GM (4.5 GM, 2 IN 1 D),ORAL
     Route: 048
     Dates: start: 20030718
  3. XYREM [Suspect]
     Indication: CATAPLEXY
     Dosage: 4.5 GM (2.25 GM,2 IN 1 D),ORAL, ORAL,  9 GM (4.5 GM, 2 IN 1 D),ORAL
     Route: 048
     Dates: start: 20030103, end: 20030101

REACTIONS (1)
  - SPINAL FUSION SURGERY [None]
